FAERS Safety Report 10043453 (Version 2)
Quarter: 2014Q2

REPORT INFORMATION
  Report Type: Spontaneous
  Country: US (occurrence: US)
  Receive Date: 20140328
  Receipt Date: 20140422
  Transmission Date: 20141212
  Serious: Yes (Other)
  Sender: FDA-Public Use
  Company Number: US-PFIZER INC-2014086562

PATIENT
  Age: 48 Year
  Sex: Female

DRUGS (1)
  1. VFEND [Suspect]
     Dosage: 1 DF, BID
     Route: 048
     Dates: start: 201403, end: 20140324

REACTIONS (1)
  - Coma [Unknown]
